FAERS Safety Report 12550361 (Version 1)
Quarter: 2016Q3

REPORT INFORMATION
  Report Type: Spontaneous
  Country: US (occurrence: US)
  Receive Date: 20160712
  Receipt Date: 20160712
  Transmission Date: 20161109
  Serious: Yes (Other)
  Sender: FDA-Public Use
  Company Number: US-IMPAX LABORATORIES, INC-2016-IPXL-00733

PATIENT
  Age: 44 Year
  Sex: Female

DRUGS (11)
  1. DEXAMETHASONE. [Concomitant]
     Active Substance: DEXAMETHASONE
     Indication: PRODUCT USED FOR UNKNOWN INDICATION
     Dosage: 4 MG, EVERY 6HR
     Route: 042
  2. ADRENACLICK [Suspect]
     Active Substance: EPINEPHRINE
     Indication: LIP OEDEMA
     Dosage: 0.3 MG, UNK
     Route: 058
  3. METHYLPREDNISOLONE SODIUM SUCCINATE. [Concomitant]
     Active Substance: METHYLPREDNISOLONE SODIUM SUCCINATE
     Indication: PRODUCT USED FOR UNKNOWN INDICATION
     Dosage: 125 MG X 2, UNK
     Route: 042
  4. DIPHENHYDRAMINE. [Concomitant]
     Active Substance: DIPHENHYDRAMINE
     Dosage: 25 MG, EVERY 6HR
     Route: 042
  5. ADRENACLICK [Suspect]
     Active Substance: EPINEPHRINE
     Indication: FACE OEDEMA
     Dosage: 3 MG, UNK
     Route: 058
  6. ADRENACLICK [Suspect]
     Active Substance: EPINEPHRINE
     Indication: PHARYNGEAL OEDEMA
  7. LISINOPRIL. [Concomitant]
     Active Substance: LISINOPRIL
     Indication: PRODUCT USED FOR UNKNOWN INDICATION
     Dosage: 10 MG, DAILY
     Route: 065
  8. DIPHENHYDRAMINE. [Concomitant]
     Active Substance: DIPHENHYDRAMINE
     Indication: PRODUCT USED FOR UNKNOWN INDICATION
     Dosage: UNK
     Route: 065
  9. ADRENACLICK [Suspect]
     Active Substance: EPINEPHRINE
     Indication: OEDEMA MOUTH
  10. ESCITALOPRAM [Concomitant]
     Active Substance: ESCITALOPRAM OXALATE
     Indication: PRODUCT USED FOR UNKNOWN INDICATION
     Dosage: 20 MG, DAILY
     Route: 065
  11. DEXAMETHASONE. [Concomitant]
     Active Substance: DEXAMETHASONE
     Dosage: 4 MG, EVERY 12HR
     Route: 042

REACTIONS (5)
  - Pharyngeal oedema [Unknown]
  - Condition aggravated [Unknown]
  - Stress cardiomyopathy [Recovered/Resolved]
  - Accidental overdose [Unknown]
  - Oedema mouth [Unknown]
